FAERS Safety Report 14581714 (Version 3)
Quarter: 2018Q2

REPORT INFORMATION
  Report Type: Spontaneous
  Country: JP (occurrence: JP)
  Receive Date: 20180228
  Receipt Date: 20180601
  Transmission Date: 20180711
  Serious: Yes (Death, Hospitalization, Other)
  Sender: FDA-Public Use
  Company Number: JP-009507513-1710JPN001451J

PATIENT
  Age: 63 Year
  Sex: Female
  Weight: 36 kg

DRUGS (10)
  1. LOXOPROFEN [Concomitant]
     Active Substance: LOXOPROFEN
     Indication: PAIN MANAGEMENT
     Dosage: 60 MG, TID
     Route: 048
     Dates: start: 20170719
  2. NEXIUM [Concomitant]
     Active Substance: ESOMEPRAZOLE MAGNESIUM
     Indication: ULCER
     Dosage: 20 MG, QD
     Route: 048
     Dates: start: 20170719
  3. LYRICA [Concomitant]
     Active Substance: PREGABALIN
     Indication: PAIN MANAGEMENT
     Dosage: 75 MG, QD
     Route: 048
     Dates: start: 20170803
  4. FLAGYL [Concomitant]
     Active Substance: METRONIDAZOLE\METRONIDAZOLE HYDROCHLORIDE
     Indication: VULVOVAGINITIS TRICHOMONAL
     Dosage: 250 MG, BID
     Route: 048
     Dates: start: 20170919, end: 20170925
  5. FEXOFENADINE HYDROCHLORIDE. [Concomitant]
     Active Substance: FEXOFENADINE HYDROCHLORIDE
     Indication: URTICARIA
     Dosage: 120 MG, UNK
     Route: 048
  6. EURAX [Concomitant]
     Active Substance: CROTAMITON
     Indication: URTICARIA
     Dosage: UNK
     Route: 061
  7. OXYCODONE [Concomitant]
     Active Substance: OXYCODONE
     Indication: PAIN MANAGEMENT
     Dosage: 5 MG, BID
     Route: 048
     Dates: start: 20170719
  8. OXINORM [Concomitant]
     Dosage: 2.5 MG, UNK
     Route: 048
  9. KEYTRUDA [Suspect]
     Active Substance: PEMBROLIZUMAB
     Indication: LUNG ADENOCARCINOMA
     Dosage: 200 MG, Q3W
     Route: 041
     Dates: start: 20170823, end: 20170913
  10. MAGMITT [Concomitant]
     Active Substance: MAGNESIUM OXIDE
     Indication: CONSTIPATION
     Dosage: 330 MG, TID
     Route: 048
     Dates: start: 20170719

REACTIONS (3)
  - Interstitial lung disease [Recovering/Resolving]
  - Pneumothorax [Unknown]
  - Malignant neoplasm progression [Fatal]

NARRATIVE: CASE EVENT DATE: 20170929
